FAERS Safety Report 7129862-4 (Version None)
Quarter: 2010Q4

REPORT INFORMATION
  Report Type: 
  Country: None (occurrence: None)
  Receive Date: 20101130
  Receipt Date: 20101007
  Transmission Date: 20110411
  Serious: No
  Sender: FDA-Public Use
  Company Number: US-AMGEN-KDL417800

PATIENT

DRUGS (2)
  1. NPLATE [Suspect]
     Indication: IDIOPATHIC THROMBOCYTOPENIC PURPURA
     Dosage: 1 A?G/KG, UNK
     Dates: start: 20090904, end: 20100224
  2. NPLATE [Suspect]
     Dosage: UNK UNK, UNK
     Dates: end: 20100318

REACTIONS (3)
  - CONTUSION [None]
  - DENTAL CARIES [None]
  - TOOTH EXTRACTION [None]
